FAERS Safety Report 5007708-8 (Version None)
Quarter: 2006Q2

REPORT INFORMATION
  Report Type: 
  Country: None (occurrence: None)
  Receive Date: 20060522
  Receipt Date: 20060516
  Transmission Date: 20061013
  Serious: Yes (Life-Threatening)
  Sender: FDA-Public Use
  Company Number: FR-JNJFOC-20060405941

PATIENT
  Sex: Male
  Weight: 65 kg

DRUGS (2)
  1. DURAGESIC-100 [Suspect]
     Indication: CANCER PAIN
     Route: 062
  2. MORPHINE [Suspect]
     Indication: CANCER PAIN
     Route: 058

REACTIONS (8)
  - BODY TEMPERATURE INCREASED [None]
  - COMA [None]
  - DEPRESSED LEVEL OF CONSCIOUSNESS [None]
  - DRUG INEFFECTIVE [None]
  - EPILEPSY [None]
  - MIOSIS [None]
  - PARTIAL SEIZURES [None]
  - RESPIRATORY DEPRESSION [None]
